FAERS Safety Report 20319689 (Version 7)
Quarter: 2022Q3

REPORT INFORMATION
  Report Type: Spontaneous
  Country: CA (occurrence: CA)
  Receive Date: 20220110
  Receipt Date: 20220917
  Transmission Date: 20221027
  Serious: Yes (Other)
  Sender: FDA-Public Use
  Company Number: CA-CELLTRION INC.-2021CA008457

PATIENT

DRUGS (13)
  1. INFLECTRA [Suspect]
     Active Substance: INFLIXIMAB-DYYB
     Indication: Ankylosing spondylitis
     Dosage: 700 MG Q 0, 2 AND 6 WEEKS, THEN Q 6 WEEKS
     Route: 042
     Dates: start: 20210518, end: 20210518
  2. INFLECTRA [Suspect]
     Active Substance: INFLIXIMAB-DYYB
     Dosage: 700MG, 0, 2 AND 6 WEEKS THEN Q 6 WEEKS
     Route: 042
     Dates: start: 20210602
  3. INFLECTRA [Suspect]
     Active Substance: INFLIXIMAB-DYYB
     Dosage: 700MG, 0, 2 AND 6 WEEKS THEN Q 6 WEEKS
     Route: 042
     Dates: start: 20210921
  4. INFLECTRA [Suspect]
     Active Substance: INFLIXIMAB-DYYB
     Dosage: 700MG, 0, 2 AND 6 WEEKS THEN Q 6 WEEKS
     Route: 042
     Dates: start: 20211102
  5. INFLECTRA [Suspect]
     Active Substance: INFLIXIMAB-DYYB
     Dosage: 700MG, 0, 2 AND 6 WEEKS THEN Q 6 WEEKS
     Route: 042
     Dates: start: 20211229
  6. INFLECTRA [Suspect]
     Active Substance: INFLIXIMAB-DYYB
     Dosage: 700 MG  0, 2 AND 6 WEEKS THEN Q 6 WEEKS
     Route: 042
     Dates: start: 20220209
  7. INFLECTRA [Suspect]
     Active Substance: INFLIXIMAB-DYYB
     Dosage: 700 MG  0, 2 AND 6 WEEKS THEN Q 6 WEEKS
     Route: 042
     Dates: start: 20220322
  8. INFLECTRA [Suspect]
     Active Substance: INFLIXIMAB-DYYB
     Dosage: 700 MG  0, 2 AND 6 WEEKS THEN Q 6 WEEKS
     Route: 042
     Dates: start: 20220503
  9. INFLECTRA [Suspect]
     Active Substance: INFLIXIMAB-DYYB
     Dosage: 700 MG  Q 0, 2 AND 6 WEEKS, THEN Q 6 WEEKS
     Route: 042
     Dates: start: 20220614
  10. INFLECTRA [Suspect]
     Active Substance: INFLIXIMAB-DYYB
     Dosage: 700 MG  Q 0, 2 AND 6 WEEKS, THEN Q 6 WEEKS
     Route: 042
     Dates: start: 20220726
  11. INFLECTRA [Suspect]
     Active Substance: INFLIXIMAB-DYYB
     Dosage: 700 MG  Q 0, 2 AND 6 WEEKS, THEN Q 6 WEEKS
     Route: 042
     Dates: start: 20220907
  12. ADVIL [Concomitant]
     Active Substance: IBUPROFEN
     Dosage: 400 MG UNKNOWN FREQUENCY
     Route: 065
  13. CANNABIS SATIVA SUBSP. INDICA TOP [Concomitant]
     Active Substance: CANNABIS SATIVA SUBSP. INDICA TOP
     Dosage: 1 DF

REACTIONS (10)
  - Hypersensitivity [Unknown]
  - Inappropriate schedule of product administration [Unknown]
  - Weight increased [Unknown]
  - Weight decreased [Not Recovered/Not Resolved]
  - Heart rate irregular [Not Recovered/Not Resolved]
  - Blood pressure diastolic increased [Unknown]
  - Body temperature decreased [Unknown]
  - Heart rate decreased [Not Recovered/Not Resolved]
  - Blood pressure fluctuation [Not Recovered/Not Resolved]
  - Hypotension [Unknown]

NARRATIVE: CASE EVENT DATE: 20210101
